FAERS Safety Report 10306529 (Version 1)
Quarter: 2014Q3

REPORT INFORMATION
  Report Type: Spontaneous
  Country: MX (occurrence: MX)
  Receive Date: 20140715
  Receipt Date: 20140715
  Transmission Date: 20150326
  Serious: Yes (Other)
  Sender: FDA-Public Use
  Company Number: MX-PFIZER INC-2014194297

PATIENT
  Age: 70 Year
  Sex: Female

DRUGS (3)
  1. LYRICA [Suspect]
     Active Substance: PREGABALIN
     Indication: BACK PAIN
  2. LYRICA [Suspect]
     Active Substance: PREGABALIN
     Indication: VASCULAR PAIN
     Dosage: 75 MG, 1X/DAY AT NIGHTS
     Route: 048
     Dates: start: 2012, end: 2013
  3. LYRICA [Suspect]
     Active Substance: PREGABALIN
     Indication: PAIN

REACTIONS (3)
  - Depressed level of consciousness [Recovered/Resolved]
  - Mental impairment [Recovered/Resolved]
  - Somnolence [Recovered/Resolved]
